FAERS Safety Report 6278591-8 (Version None)
Quarter: 2009Q3

REPORT INFORMATION
  Report Type: 
  Country: None (occurrence: None)
  Receive Date: 20090722
  Receipt Date: 20090106
  Transmission Date: 20100115
  Serious: No
  Sender: FDA-Public Use
  Company Number: US-BAUSCH-2009BL000046

PATIENT
  Age: 61 Year
  Sex: Female
  Weight: 66 kg

DRUGS (11)
  1. OPCON-A [Suspect]
     Indication: EYE ALLERGY
     Route: 047
     Dates: start: 20081001, end: 20081001
  2. OPCON-A [Suspect]
     Indication: DRY EYE
     Route: 047
     Dates: start: 20081001, end: 20081001
  3. ZYRTEC [Concomitant]
     Indication: SEASONAL ALLERGY
     Route: 048
  4. HUMIRA [Concomitant]
     Indication: RHEUMATOID ARTHRITIS
     Route: 030
  5. PREVACID [Concomitant]
     Indication: DYSPEPSIA
     Route: 048
  6. LEVSIN [Concomitant]
     Route: 048
  7. VITAMIN D [Concomitant]
     Indication: VITAMIN SUPPLEMENTATION
     Route: 048
  8. FISH OIL [Concomitant]
     Indication: VITAMIN SUPPLEMENTATION
     Route: 048
  9. LIPITOR [Concomitant]
     Indication: BLOOD CHOLESTEROL INCREASED
     Route: 048
  10. TOPAMAX [Concomitant]
     Indication: MIGRAINE
     Route: 048
  11. RELPAX [Concomitant]
     Indication: MIGRAINE
     Route: 048

REACTIONS (6)
  - CONDITION AGGRAVATED [None]
  - ERYTHEMA OF EYELID [None]
  - EYE PAIN [None]
  - EYE PRURITUS [None]
  - EYELID OEDEMA [None]
  - OCULAR HYPERAEMIA [None]
